FAERS Safety Report 19739182 (Version 8)
Quarter: 2023Q2

REPORT INFORMATION
  Report Type: Spontaneous
  Country: US (occurrence: US)
  Receive Date: 20210824
  Receipt Date: 20230511
  Transmission Date: 20230722
  Serious: Yes (Hospitalization, Other)
  Sender: FDA-Public Use
  Company Number: US-PFIZER INC-202101057845

PATIENT
  Age: 74 Year
  Sex: Male
  Weight: 115.67 kg

DRUGS (3)
  1. VYNDAMAX [Suspect]
     Active Substance: TAFAMIDIS
     Indication: Cardiac disorder
     Dosage: 61 MG
  2. LISINOPRIL [Concomitant]
     Active Substance: LISINOPRIL
     Dosage: 40 MG, 1X/DAY
  3. ROSUVASTATIN [Concomitant]
     Active Substance: ROSUVASTATIN
     Dosage: 20 MG, DAILY

REACTIONS (6)
  - Memory impairment [Unknown]
  - Cough [Unknown]
  - Senile dementia [Unknown]
  - Renal disorder [Unknown]
  - Hypoacusis [Unknown]
  - Off label use [Unknown]
